FAERS Safety Report 11582118 (Version 1)
Quarter: 2015Q4

REPORT INFORMATION
  Report Type: Spontaneous
  Country: US (occurrence: US)
  Receive Date: 20151001
  Receipt Date: 20151001
  Transmission Date: 20160304
  Serious: No
  Sender: FDA-Public Use
  Company Number: US-ROCHE-689721

PATIENT
  Age: 55 Year
  Sex: Female
  Weight: 90.7 kg

DRUGS (12)
  1. MELOXICAM. [Concomitant]
     Active Substance: MELOXICAM
     Route: 065
  2. GABAPENTIN. [Concomitant]
     Active Substance: GABAPENTIN
     Route: 065
  3. STRATTERA [Concomitant]
     Active Substance: ATOMOXETINE HYDROCHLORIDE
     Route: 065
  4. HYDROXYZINE [Concomitant]
     Active Substance: HYDROXYZINE\HYDROXYZINE HYDROCHLORIDE
     Route: 065
  5. TYLENOL [Concomitant]
     Active Substance: ACETAMINOPHEN
     Route: 065
  6. PEGASYS [Suspect]
     Active Substance: PEGINTERFERON ALFA-2A
     Dosage: FORM: PRE-FILLED SYRINGE; PATIENT IN WEEK 13 OF TREATMENT
     Route: 065
  7. IBUPROFEN. [Concomitant]
     Active Substance: IBUPROFEN
     Indication: ARTHRITIS
     Route: 065
  8. RIBASPHERE [Suspect]
     Active Substance: RIBAVIRIN
     Indication: HEPATITIS C
     Dosage: DURATION: SHORT TIME
     Route: 048
     Dates: start: 2009, end: 2009
  9. RIBASPHERE [Suspect]
     Active Substance: RIBAVIRIN
     Dosage: THE PATIENT WAS IN WEEK 13 OF TREATMENT.
     Route: 048
  10. LAMICTAL [Concomitant]
     Active Substance: LAMOTRIGINE
     Route: 065
  11. MOBIC [Concomitant]
     Active Substance: MELOXICAM
     Route: 065
  12. PEGASYS [Suspect]
     Active Substance: PEGINTERFERON ALFA-2A
     Indication: HEPATITIS C
     Dosage: DURATION: SHORT TIME
     Route: 065
     Dates: start: 2009, end: 2009

REACTIONS (23)
  - Muscular weakness [Unknown]
  - Musculoskeletal stiffness [Unknown]
  - Insomnia [Not Recovered/Not Resolved]
  - Immunodeficiency [Not Recovered/Not Resolved]
  - Injection site erythema [Unknown]
  - Gastrooesophageal reflux disease [Recovering/Resolving]
  - Chromaturia [Recovered/Resolved]
  - Inflammation [Not Recovered/Not Resolved]
  - Joint effusion [Not Recovered/Not Resolved]
  - Depression [Recovering/Resolving]
  - Synovial cyst [Recovered/Resolved]
  - Irritability [Unknown]
  - Fatigue [Not Recovered/Not Resolved]
  - Asthenia [Not Recovered/Not Resolved]
  - Tremor [Not Recovered/Not Resolved]
  - Fatigue [Unknown]
  - Influenza like illness [Unknown]
  - Rash [Not Recovered/Not Resolved]
  - Headache [Not Recovered/Not Resolved]
  - Diarrhoea [Not Recovered/Not Resolved]
  - Somnolence [Recovering/Resolving]
  - Nausea [Unknown]
  - Dry skin [Not Recovered/Not Resolved]

NARRATIVE: CASE EVENT DATE: 2009
